FAERS Safety Report 24533486 (Version 1)
Quarter: 2024Q4

REPORT INFORMATION
  Report Type: Spontaneous
  Country: DE (occurrence: DE)
  Receive Date: 20241022
  Receipt Date: 20241022
  Transmission Date: 20250114
  Serious: Yes (Other)
  Sender: SANDOZ
  Company Number: DE-NOVPHSZ-PHHY2019DE215434

PATIENT
  Age: 1 Day
  Sex: Female

DRUGS (6)
  1. AMITRIPTYLINE HYDROCHLORIDE [Suspect]
     Active Substance: AMITRIPTYLINE HYDROCHLORIDE
     Indication: Foetal exposure during pregnancy
     Dosage: MATERNAL DOSE: 75 MG, QD
     Route: 064
     Dates: start: 20170422, end: 20180114
  2. FOLIC ACID\VITAMINS [Concomitant]
     Active Substance: FOLIC ACID\VITAMINS
     Indication: Foetal exposure during pregnancy
     Dosage: MATERNAL DOSE: 0.8 [MG/D (BIS 0.4)]
     Route: 064
  3. IBUPROFEN [Concomitant]
     Active Substance: IBUPROFEN
     Indication: Foetal exposure during pregnancy
     Dosage: MATERNAL DOSE: 800 [MG/D (B.BED.) ]/ IF NEEDED
     Route: 064
  4. LEVOTHYROXINE [Concomitant]
     Active Substance: LEVOTHYROXINE
     Indication: Foetal exposure during pregnancy
     Dosage: MATERNAL DOSE: 75 UG, QD
     Route: 064
     Dates: start: 20170422, end: 20180114
  5. ACETAMINOPHEN [Concomitant]
     Active Substance: ACETAMINOPHEN
     Indication: Foetal exposure during pregnancy
     Dosage: MATERNAL DOSE: 1000 MG, QD
     Route: 064
  6. ACETAMINOPHEN\CODEINE PHOSPHATE [Concomitant]
     Active Substance: ACETAMINOPHEN\CODEINE PHOSPHATE
     Indication: Foetal exposure during pregnancy
     Dosage: MATERNAL DOSE: 500 MG, QD
     Route: 064

REACTIONS (2)
  - Hyperbilirubinaemia [Recovered/Resolved]
  - Respiratory disorder neonatal [Recovered/Resolved]

NARRATIVE: CASE EVENT DATE: 20180114
